FAERS Safety Report 5065645-7 (Version None)
Quarter: 2006Q3

REPORT INFORMATION
  Report Type: 
  Country: None (occurrence: None)
  Receive Date: 20060714
  Receipt Date: 20060510
  Transmission Date: 20061208
  Serious: No
  Sender: FDA-Public Use
  Company Number: 2006SP002080

PATIENT
  Age: 48 Year
  Sex: Female
  Weight: 67.1324 kg

DRUGS (2)
  1. LUNESTA [Suspect]
     Indication: INSOMNIA
     Dosage: 3 MG;HS;ORAL
     Route: 048
     Dates: start: 20050701, end: 20060501
  2. TEMAZEPAM [Concomitant]

REACTIONS (3)
  - DYSGEUSIA [None]
  - DYSPNOEA [None]
  - WEIGHT INCREASED [None]
